FAERS Safety Report 11545264 (Version 1)
Quarter: 2015Q3

REPORT INFORMATION
  Report Type: Spontaneous
  Country: SE (occurrence: SE)
  Receive Date: 20150924
  Receipt Date: 20150924
  Transmission Date: 20151125
  Serious: Yes (Other)
  Sender: FDA-Public Use
  Company Number: SE-PFIZER INC-2013195260

PATIENT
  Age: 67 Year
  Sex: Female

DRUGS (12)
  1. ALLOPURINOL ^NYCOMED^ [Concomitant]
     Active Substance: ALLOPURINOL
     Dosage: 100 MG, UNK
  2. PANODIL [Concomitant]
     Active Substance: ACETAMINOPHEN
     Dosage: UNK
  3. IMPUGAN [Concomitant]
     Active Substance: FUROSEMIDE
     Dosage: UNK
  4. OMEPRAZOL ACTAVIS [Concomitant]
     Active Substance: OMEPRAZOLE
     Dosage: 10 MG, UNK
  5. NORSPAN [Concomitant]
     Active Substance: BUPRENORPHINE
  6. SPIRONOLACTONE NYCOMED [Concomitant]
     Dosage: 25 MG, UNK
  7. WARAN [Concomitant]
     Active Substance: WARFARIN SODIUM
     Dosage: 2.5 MG, UNK
  8. LYRICA [Suspect]
     Active Substance: PREGABALIN
     Indication: PAIN
     Dosage: 75 MG, 1X/DAY
     Dates: start: 20130228, end: 20130323
  9. LOSARTAN POTASSIUM W/HYDROCHLOROTHIAZIDE TEVA [Concomitant]
     Dosage: 100 MG/25 MG
  10. METOPROLOL ACTAVIS [Concomitant]
     Active Substance: METOPROLOL
     Dosage: 200 MG, UNK
  11. BEHEPAN [Concomitant]
     Active Substance: HYDROXOCOBALAMIN
     Dosage: UNK
  12. PREDNISOLON PFIZER [Concomitant]
     Active Substance: PREDNISOLONE
     Dosage: UNK

REACTIONS (4)
  - Weight increased [Not Recovered/Not Resolved]
  - Peripheral circulatory failure [Unknown]
  - Skin ulcer [Unknown]
  - Oedema peripheral [Not Recovered/Not Resolved]

NARRATIVE: CASE EVENT DATE: 201303
